FAERS Safety Report 9087191 (Version 2)
Quarter: 2013Q2

REPORT INFORMATION
  Report Type: Spontaneous
  Country: IT (occurrence: IT)
  Receive Date: 20130201
  Receipt Date: 20130405
  Transmission Date: 20140414
  Serious: Yes (Disabling)
  Sender: FDA-Public Use
  Company Number: IT-009507513-1301ITA014104

PATIENT
  Age: 70 Year
  Sex: Female

DRUGS (5)
  1. ADROVANCE [Suspect]
     Indication: OSTEOPOROSIS
     Dosage: 70 MG, QW
     Route: 048
     Dates: start: 20040701, end: 20130123
  2. OMEPRAZOLE [Concomitant]
     Route: 048
  3. ALGIX [Concomitant]
     Dosage: UNK, PRN
     Route: 048
  4. NATECAL [Concomitant]
     Dosage: 1 DF, QD
     Route: 048
     Dates: start: 2011
  5. DIBASE [Concomitant]
     Dosage: UNK
     Dates: start: 2012

REACTIONS (1)
  - Osteonecrosis [Unknown]
